FAERS Safety Report 22266457 (Version 2)
Quarter: 2023Q2

REPORT INFORMATION
  Report Type: Spontaneous
  Country: BR (occurrence: BR)
  Receive Date: 20230428
  Receipt Date: 20230515
  Transmission Date: 20230721
  Serious: Yes (Other)
  Sender: FDA-Public Use
  Company Number: BR-009507513-2304BRA010678

PATIENT
  Age: 63 Year
  Sex: Male
  Weight: 103 kg

DRUGS (3)
  1. JANUMET [Suspect]
     Active Substance: METFORMIN HYDROCHLORIDE\SITAGLIPTIN PHOSPHATE
     Indication: Blood glucose abnormal
     Dosage: (STRENGTH 50/1000 MG), 1 TABLET ONCE A DAY
     Route: 048
     Dates: end: 2020
  2. JANUMET [Suspect]
     Active Substance: METFORMIN HYDROCHLORIDE\SITAGLIPTIN PHOSPHATE
     Dosage: STRENGTH 50/1000 MG, 2 TABLETS A DAY (1 IN THE MORNING AND 1 AT NIGHT)
     Route: 048
     Dates: start: 2020
  3. JARDIANCE [Concomitant]
     Active Substance: EMPAGLIFLOZIN
     Indication: Diabetes mellitus
     Dosage: STRENGTH 25 MG, 1 TABLET EVERY MORNING

REACTIONS (10)
  - Coronary artery disease [Unknown]
  - Acute myocardial infarction [Unknown]
  - Arterial occlusive disease [Unknown]
  - Diabetes mellitus inadequate control [Recovered/Resolved]
  - Blood pressure abnormal [Unknown]
  - Blood triglycerides abnormal [Unknown]
  - Blood cholesterol abnormal [Unknown]
  - Vitamin D deficiency [Unknown]
  - Incorrect dose administered [Unknown]
  - Inappropriate schedule of product administration [Unknown]

NARRATIVE: CASE EVENT DATE: 20200101
